FAERS Safety Report 9663673 (Version 1)
Quarter: 2013Q4

REPORT INFORMATION
  Report Type: Spontaneous
  Country: US (occurrence: None)
  Receive Date: 20131030
  Receipt Date: 20131030
  Transmission Date: 20140711
  Serious: No
  Sender: FDA-Public Use
  Company Number: None

PATIENT
  Age: 52 Year
  Sex: Female
  Weight: 92.99 kg

DRUGS (1)
  1. BONIVA [Suspect]
     Dosage: 1 PILL TAKEN BY MOUTH
     Route: 048
     Dates: start: 20130928, end: 20131026

REACTIONS (8)
  - Movement disorder [None]
  - Chest discomfort [None]
  - Back pain [None]
  - Arthralgia [None]
  - Arthralgia [None]
  - Pain in extremity [None]
  - Abdominal pain upper [None]
  - Micturition urgency [None]
